FAERS Safety Report 8909586 (Version 3)
Quarter: 2013Q1

REPORT INFORMATION
  Report Type: Report from Study
  Country: CA (occurrence: CA)
  Receive Date: 20121115
  Receipt Date: 20130313
  Transmission Date: 20140127
  Serious: Yes (Other)
  Sender: FDA-Public Use
  Company Number: CA-ROCHE-1153144

PATIENT
  Age: 55 None
  Sex: Female
  Weight: 53.1 kg

DRUGS (17)
  1. RITUXAN [Suspect]
     Indication: RHEUMATOID ARTHRITIS
     Route: 042
     Dates: start: 20090325
  2. RITUXAN [Suspect]
     Indication: RAYNAUD^S PHENOMENON
     Route: 042
     Dates: start: 20121115
  3. RITUXAN [Suspect]
     Indication: SJOGREN^S SYNDROME
     Route: 042
     Dates: start: 20121128
  4. SOLU-MEDROL [Suspect]
     Indication: RHEUMATOID ARTHRITIS
     Route: 042
  5. PREDNISONE [Concomitant]
     Route: 065
  6. ARAVA [Concomitant]
     Route: 048
  7. ARAVA [Concomitant]
     Route: 048
  8. PLAQUENIL [Concomitant]
     Route: 048
  9. ERYTHROMYCIN [Concomitant]
     Indication: ROSACEA
     Route: 061
  10. VITAMIN B12 [Concomitant]
     Route: 065
  11. CYSTEIN [Concomitant]
  12. VAGIFEM [Concomitant]
     Route: 067
  13. PROGESTERONE CREAM [Concomitant]
     Indication: VULVOVAGINAL DRYNESS
  14. OMEPRAZOLE [Concomitant]
     Route: 065
  15. VITAMIN B6 [Concomitant]
  16. GAVISCON (ALGINIC ACID) [Concomitant]
  17. LOSEC (CANADA) [Concomitant]
     Indication: PROPHYLAXIS
     Route: 048

REACTIONS (6)
  - Cerebral disorder [Not Recovered/Not Resolved]
  - Multiple sclerosis [Unknown]
  - Breast mass [Not Recovered/Not Resolved]
  - Anxiety [Recovered/Resolved]
  - Palpitations [Unknown]
  - Flushing [Unknown]
